FAERS Safety Report 23762495 (Version 1)
Quarter: 2024Q2

REPORT INFORMATION
  Report Type: Spontaneous
  Country: CA (occurrence: CA)
  Receive Date: 20240419
  Receipt Date: 20240419
  Transmission Date: 20240716
  Serious: Yes (Other)
  Sender: FDA-Public Use
  Company Number: CA-TEVA-VS-3184476

PATIENT
  Age: 61 Year
  Sex: Female

DRUGS (3)
  1. METHOTREXATE SODIUM [Suspect]
     Active Substance: METHOTREXATE SODIUM
     Indication: Product used for unknown indication
     Route: 065
  2. SYNTHROID [Concomitant]
     Active Substance: LEVOTHYROXINE SODIUM
     Indication: Product used for unknown indication
     Route: 065
  3. VITAMIN D [COLECALCIFEROL] [Concomitant]
     Indication: Product used for unknown indication
     Route: 065

REACTIONS (5)
  - Alopecia [Unknown]
  - Condition aggravated [Unknown]
  - Full blood count decreased [Unknown]
  - Hepatitis [Unknown]
  - Hepatic steatosis [Unknown]
